FAERS Safety Report 9398400 (Version 2)
Quarter: 2013Q3

REPORT INFORMATION
  Report Type: Spontaneous
  Country: US (occurrence: US)
  Receive Date: 20130712
  Receipt Date: 20130823
  Transmission Date: 20140515
  Serious: Yes (Hospitalization)
  Sender: FDA-Public Use
  Company Number: US-SHIONOGI LIMITED-2013000212

PATIENT
  Age: 57 Year
  Sex: Female
  Weight: 53.52 kg

DRUGS (7)
  1. OSPHENA [Suspect]
     Indication: DYSPAREUNIA
     Dosage: 60 MG, QD
     Route: 048
     Dates: start: 20130622, end: 20130625
  2. ESTRACE [Concomitant]
     Indication: UROGENITAL ATROPHY
     Dosage: 1 G  TWICE A WEEK
     Route: 067
     Dates: start: 2011, end: 201306
  3. VAGIFEM [Concomitant]
     Indication: UROGENITAL ATROPHY
     Dosage: 1 TABLET TWICE A WEEK
     Route: 067
     Dates: start: 2009, end: 201306
  4. ADVAIR [Concomitant]
     Indication: ASTHMA
     Dosage: 100/50 (SEP TO MAY)
     Route: 055
  5. ADVAIR [Concomitant]
     Dosage: 250/50 (WARM WEATHER)
     Route: 055
  6. VENTOLIN [Concomitant]
     Indication: ASTHMA
     Dosage: 2 PUFFS, PRN
     Route: 055
  7. LEXAPRO [Concomitant]
     Indication: PRODUCT USED FOR UNKNOWN INDICATION
     Dosage: 5 MG PER WEEK
     Route: 048
     Dates: start: 2002

REACTIONS (27)
  - Chest pain [Recovered/Resolved]
  - Dyspnoea [Recovered/Resolved]
  - Sensation of pressure [Recovered/Resolved]
  - Breast pain [Recovered/Resolved]
  - Pain in jaw [Recovered/Resolved]
  - Sensory disturbance [Recovered/Resolved]
  - Malaise [Recovered/Resolved]
  - Pain [Recovered/Resolved]
  - Hypoaesthesia [Recovered/Resolved]
  - Headache [Recovered/Resolved]
  - Asthenia [Recovered/Resolved]
  - Tremor [Recovered/Resolved]
  - Dizziness [Recovered/Resolved]
  - Ventricular extrasystoles [Unknown]
  - Wandering pacemaker [Unknown]
  - Electrocardiogram ST segment depression [Unknown]
  - Red blood cell count decreased [Unknown]
  - Haemoglobin decreased [Recovered/Resolved]
  - Haematocrit decreased [Unknown]
  - Neutrophil count decreased [Recovered/Resolved]
  - Lymphocyte count decreased [Recovered/Resolved]
  - Blood glucose increased [Recovered/Resolved]
  - Blood lactate dehydrogenase increased [Unknown]
  - White blood cell count decreased [Unknown]
  - Mean platelet volume increased [Unknown]
  - Blood pressure systolic increased [Recovered/Resolved]
  - Flushing [Recovered/Resolved]
